FAERS Safety Report 6529051-8 (Version None)
Quarter: 2009Q4

REPORT INFORMATION
  Report Type: 
  Country: None (occurrence: None)
  Receive Date: 20091224
  Receipt Date: 20091215
  Transmission Date: 20100525
  Serious: Yes (Death, Life-Threatening, Hospitalization, Disabling)
  Sender: FDA-Public Use
  Company Number: WAES 0910USA02988

PATIENT
  Age: 50 Year
  Sex: Female

DRUGS (6)
  1. CAP VORINOSTAT [Suspect]
     Indication: MULTIPLE MYELOMA
     Dosage: 400 MG/DAILY PO
     Route: 048
     Dates: start: 20091019, end: 20091019
  2. INJ BORTEZOMIB [Suspect]
     Indication: MULTIPLE MYELOMA
     Dosage: 2.14 MG/DAILY IV
     Route: 042
     Dates: start: 20091019, end: 20091019
  3. ASPIRIN [Concomitant]
  4. TRANSTEC [Concomitant]
  5. ZOVIRAX [Concomitant]
  6. OMEPRAZOLE [Concomitant]

REACTIONS (4)
  - BLOOD CALCIUM DECREASED [None]
  - DISEASE PROGRESSION [None]
  - MULTIPLE MYELOMA [None]
  - PLATELET COUNT DECREASED [None]
